FAERS Safety Report 5145436-9 (Version None)
Quarter: 2006Q4

REPORT INFORMATION
  Report Type: 
  Country: None (occurrence: None)
  Receive Date: 20061101
  Receipt Date: 20061025
  Transmission Date: 20070319
  Serious: Yes (Death, Hospitalization)
  Sender: FDA-Public Use
  Company Number: GBWYE332725OCT06

PATIENT
  Age: 10 Year
  Sex: Female

DRUGS (1)
  1. PIPERACILLIN AND TAZOBACTAM [Suspect]
     Dosage: 3.25 INTRAVENOUS
     Route: 042
     Dates: start: 20051124, end: 20051212

REACTIONS (5)
  - BRAIN OEDEMA [None]
  - HEPATORENAL FAILURE [None]
  - LEUKOCYTOCLASTIC VASCULITIS [None]
  - PYREXIA [None]
  - RASH [None]
